FAERS Safety Report 5621219-8 (Version None)
Quarter: 2008Q1

REPORT INFORMATION
  Report Type: 
  Country: None (occurrence: None)
  Receive Date: 20080114
  Receipt Date: 20061226
  Transmission Date: 20080703
  Serious: Yes (Hospitalization)
  Sender: FDA-Public Use
  Company Number: A03200700045

PATIENT
  Age: 66 Year
  Sex: Female
  Weight: 95.2554 kg

DRUGS (5)
  1. PLAVIX [Suspect]
     Indication: CORONARY ARTERY BYPASS
     Dosage: ORAL
     Route: 048
     Dates: start: 20000101
  2. ASPIRIN [Suspect]
     Indication: CORONARY ARTERY BYPASS
     Dosage: ORAL
     Route: 048
     Dates: start: 20000101
  3. COUMADIN [Suspect]
     Indication: ATRIAL FIBRILLATION
     Dosage: ORAL
     Route: 048
     Dates: start: 20050901, end: 20050919
  4. VITAMIN E [Concomitant]
  5. FERROUS FUMARATE [Concomitant]

REACTIONS (6)
  - ANAEMIA [None]
  - ANAPHYLACTIC SHOCK [None]
  - CORONARY ARTERY OCCLUSION [None]
  - GASTROINTESTINAL HAEMORRHAGE [None]
  - MYOCARDIAL INFARCTION [None]
  - PULMONARY OEDEMA [None]
